FAERS Safety Report 4576944-7 (Version None)
Quarter: 2005Q1

REPORT INFORMATION
  Report Type: 
  Country: None (occurrence: None)
  Receive Date: 20050208
  Receipt Date: 20050125
  Transmission Date: 20050727
  Serious: Yes (Hospitalization)
  Sender: FDA-Public Use
  Company Number: CEL-2004-02125-ROC

PATIENT
  Age: 52 Year
  Sex: Male

DRUGS (13)
  1. METOLAZONE [Suspect]
     Indication: HYPERTENSION
     Dates: start: 20041107, end: 20041107
  2. MICARDIS [Suspect]
     Dates: end: 20041108
  3. COZAAR [Suspect]
     Dates: end: 20041108
  4. LASIX [Suspect]
     Indication: HYPERTENSION
     Dates: start: 20041101, end: 20041108
  5. VERAPAMIL [Suspect]
     Indication: HYPERTENSION
  6. METOPROLOL TARTRATE [Concomitant]
  7. GLIPIZIDE [Concomitant]
  8. INSULIN, REGULAR (INSULIN) [Concomitant]
  9. ASPIRIN [Concomitant]
  10. GEMFIBROZIL [Concomitant]
  11. NPH INSULIN [Concomitant]
  12. ALLOPURINOL [Concomitant]
  13. CRESTOR [Concomitant]

REACTIONS (12)
  - ASTHENIA [None]
  - BLOOD GLUCOSE INCREASED [None]
  - CARDIAC FAILURE CONGESTIVE [None]
  - DIZZINESS [None]
  - DYSPNOEA EXERTIONAL [None]
  - ELECTROCARDIOGRAM ABNORMAL [None]
  - MYOCARDIAL INFARCTION [None]
  - OEDEMA PERIPHERAL [None]
  - ORTHOPNOEA [None]
  - REFUSAL OF TREATMENT BY PATIENT [None]
  - RENAL FAILURE ACUTE [None]
  - SYNCOPE [None]
